FAERS Safety Report 20015480 (Version 1)
Quarter: 2021Q4

REPORT INFORMATION
  Report Type: Spontaneous
  Country: US (occurrence: None)
  Receive Date: 20211029
  Receipt Date: 20211029
  Transmission Date: 20220303
  Serious: Yes (Hospitalization)
  Sender: FDA-Public Use
  Company Number: None

PATIENT
  Age: 68 Year
  Sex: Female

DRUGS (1)
  1. STELARA [Suspect]
     Active Substance: USTEKINUMAB
     Indication: Psoriasis
     Dosage: OTHER FREQUENCY : Q12WKS;?
     Route: 058
     Dates: start: 20210506

REACTIONS (2)
  - Peripheral swelling [None]
  - Psoriatic arthropathy [None]

NARRATIVE: CASE EVENT DATE: 20211001
